FAERS Safety Report 5780130-2 (Version None)
Quarter: 2008Q2

REPORT INFORMATION
  Report Type: 
  Country: None (occurrence: None)
  Receive Date: 20080620
  Receipt Date: 20080612
  Transmission Date: 20081010
  Serious: Yes (Hospitalization)
  Sender: FDA-Public Use
  Company Number: US-ABBOTT-08P-163-0456839-00

PATIENT
  Sex: Male
  Weight: 68.1 kg

DRUGS (9)
  1. HUMIRA [Suspect]
     Indication: CROHN'S DISEASE
     Dosage: 4 PENS, 2 PENS EVERY OTHER WEEK
     Route: 058
     Dates: start: 20070901, end: 20071201
  2. HUMIRA [Suspect]
     Dosage: REPEAT STARTER
     Route: 058
     Dates: start: 20080101, end: 20080401
  3. HUMIRA [Suspect]
     Route: 050
     Dates: start: 20080401
  4. HUMIRA [Suspect]
     Dates: start: 20080101, end: 20080401
  5. MERCAPTOPURINE [Suspect]
     Indication: CROHN'S DISEASE
     Route: 048
     Dates: start: 20070901, end: 20080606
  6. MESALAMINE [Concomitant]
     Indication: CROHN'S DISEASE
     Dosage: 4-500MG TABLETS TWICE DAILY
     Route: 048
     Dates: start: 20070901
  7. TINDAMAX [Concomitant]
     Indication: CROHN'S DISEASE
     Route: 048
     Dates: start: 20080101
  8. CHOLESTYRAMINE [Concomitant]
     Indication: CROHN'S DISEASE
     Route: 048
     Dates: start: 20080401
  9. PREVACID [Concomitant]
     Indication: CROHN'S DISEASE
     Route: 048
     Dates: start: 20080101

REACTIONS (10)
  - DIZZINESS [None]
  - DRUG INEFFECTIVE [None]
  - FATIGUE [None]
  - HAEMATOCRIT DECREASED [None]
  - HAEMOGLOBIN DECREASED [None]
  - HEADACHE [None]
  - RED BLOOD CELL COUNT DECREASED [None]
  - VISION BLURRED [None]
  - VITAMIN B12 DECREASED [None]
  - WHITE BLOOD CELL COUNT DECREASED [None]
